FAERS Safety Report 10142526 (Version 1)
Quarter: 2014Q2

REPORT INFORMATION
  Report Type: Report from Study
  Country: FR (occurrence: FR)
  Receive Date: 20140430
  Receipt Date: 20140430
  Transmission Date: 20141212
  Serious: Yes (Other)
  Sender: FDA-Public Use
  Company Number: FR-BRISTOL-MYERS SQUIBB COMPANY-20652392

PATIENT
  Sex: 0

DRUGS (6)
  1. REYATAZ [Suspect]
     Route: 064
  2. ATRIPLA [Suspect]
     Route: 064
  3. NORVIR [Suspect]
     Route: 064
  4. TRUVADA [Suspect]
     Dosage: TABS/CAPS
     Route: 064
  5. ALUVIA [Suspect]
     Route: 064
  6. EPZICOM [Suspect]
     Route: 064

REACTIONS (3)
  - Pulmonary malformation [Recovered/Resolved with Sequelae]
  - Premature baby [Unknown]
  - Foetal exposure during pregnancy [Recovered/Resolved]
